FAERS Safety Report 6702354-X (Version None)
Quarter: 2010Q2

REPORT INFORMATION
  Report Type: 
  Country: None (occurrence: None)
  Receive Date: 20100429
  Receipt Date: 20100415
  Transmission Date: 20101027
  Serious: Yes (Other)
  Sender: FDA-Public Use
  Company Number: US-ELI_LILLY_AND_COMPANY-US201002003588

PATIENT
  Sex: Female

DRUGS (6)
  1. FORTEO [Suspect]
     Indication: OSTEOPOROSIS
     Dosage: 20 UG, DAILY (1/D)
     Dates: start: 20091001
  2. PLAQUENIL [Concomitant]
     Dosage: 200 MG, DAILY (1/D)
  3. SYNTHROID [Concomitant]
     Dosage: 0.5 MG, DAILY (1/D)
  4. VALTRAN [Concomitant]
     Dosage: 75 MG, DAILY (1/D)
  5. CALCIUM [Concomitant]
     Dosage: UNK, DAILY (1/D)
  6. MULTI-VITAMIN [Concomitant]
     Dosage: UNK, DAILY (1/D)

REACTIONS (6)
  - ABNORMAL SENSATION IN EYE [None]
  - ARTHRALGIA [None]
  - BONE PAIN [None]
  - PHOTOPSIA [None]
  - RETINAL DETACHMENT [None]
  - SCOTOMA [None]
